FAERS Safety Report 10042540 (Version 2)
Quarter: 2014Q2

REPORT INFORMATION
  Report Type: Report from Study
  Country: FR (occurrence: FR)
  Receive Date: 20140327
  Receipt Date: 20140424
  Transmission Date: 20141212
  Serious: Yes (Other)
  Sender: FDA-Public Use
  Company Number: FR-BAYER-2014-043547

PATIENT
  Age: 52 Year
  Sex: Male

DRUGS (8)
  1. PLACEBO (16632) [Suspect]
     Indication: SARCOMA METASTATIC
     Dosage: UNK
     Dates: start: 20131221, end: 20140107
  2. REGORAFENIB [Suspect]
     Indication: SARCOMA METASTATIC
     Dosage: LAST DOSE ADMINISTERED: 120 MG
     Dates: start: 20140111, end: 20140319
  3. OXYCONTIN [Concomitant]
     Indication: PAIN
     Dosage: DAILY DOSE 10 MG
     Dates: start: 20140323
  4. SOLUPRED [Concomitant]
     Indication: PAIN
     Dosage: DAILY DOSE 20 MG
     Dates: start: 20140107
  5. NAPROSYNE [Concomitant]
     Indication: PAIN
     Dosage: DAILY DOSE 150 MG
     Dates: start: 20140303
  6. LOXEN [Concomitant]
     Indication: HYPERTENSION
     Dosage: DAILY DOSE 20 MG
     Dates: start: 20140303
  7. MOPRAL [Concomitant]
     Indication: PROPHYLAXIS
     Dosage: DAILY DOSE 20 MG
     Dates: start: 20140303
  8. FLAGYL [Concomitant]
     Indication: NECROSIS
     Dosage: UNK
     Dates: start: 20140319

REACTIONS (1)
  - Skin ulcer [Not Recovered/Not Resolved]
